FAERS Safety Report 24620455 (Version 1)
Quarter: 2024Q4

REPORT INFORMATION
  Report Type: Spontaneous
  Country: US (occurrence: US)
  Receive Date: 20241114
  Receipt Date: 20241114
  Transmission Date: 20250114
  Serious: No
  Sender: CURRAX PHARMACEUTICALS
  Company Number: CRAX2401853

PATIENT
  Age: 61 Year
  Sex: Female

DRUGS (2)
  1. CONTRAVE [Suspect]
     Active Substance: BUPROPION HYDROCHLORIDE\NALTREXONE HYDROCHLORIDE
     Indication: Product used for unknown indication
     Dosage: STRENGTH:8/90 MG, UNKNOWN DOSE AND FREQUENCY
     Route: 065
     Dates: start: 20240621, end: 2024
  2. CONTRAVE [Suspect]
     Active Substance: BUPROPION HYDROCHLORIDE\NALTREXONE HYDROCHLORIDE
     Dosage: STRENGTH:8/90 MG, 2 TAB AM/2 TAB PM
     Route: 065
     Dates: start: 2024, end: 2024

REACTIONS (2)
  - Confusional state [Unknown]
  - Constipation [Unknown]

NARRATIVE: CASE EVENT DATE: 20240101
